FAERS Safety Report 19408918 (Version 1)
Quarter: 2021Q2

REPORT INFORMATION
  Report Type: Spontaneous
  Country: US (occurrence: US)
  Receive Date: 20210613
  Receipt Date: 20210613
  Transmission Date: 20210717
  Serious: No
  Sender: FDA-Public Use
  Company Number: US-TEVA-2021-US-1922627

PATIENT
  Sex: Male

DRUGS (1)
  1. DOXYCYCLINE HYCLATE. [Suspect]
     Active Substance: DOXYCYCLINE HYCLATE
     Route: 065

REACTIONS (4)
  - Rash [Unknown]
  - Urticaria [Unknown]
  - Pruritus [Unknown]
  - Drug hypersensitivity [Unknown]
